FAERS Safety Report 6088405-7 (Version None)
Quarter: 2009Q1

REPORT INFORMATION
  Report Type: 
  Country: None (occurrence: None)
  Receive Date: 20090224
  Receipt Date: 20090212
  Transmission Date: 20090719
  Serious: Yes (Other)
  Sender: FDA-Public Use
  Company Number: GB-PFIZER INC-2009171448

PATIENT

DRUGS (2)
  1. GABAPENTIN [Suspect]
  2. DULOXETINE HYDROCHLORIDE [Suspect]
     Route: 048

REACTIONS (1)
  - SUDDEN ONSET OF SLEEP [None]
